FAERS Safety Report 24246312 (Version 1)
Quarter: 2024Q3

REPORT INFORMATION
  Report Type: Other
  Country: JP (occurrence: JP)
  Receive Date: 20240825
  Receipt Date: 20240825
  Transmission Date: 20241017
  Serious: Yes (Death, Life-Threatening)
  Sender: DEXCEL
  Company Number: JP-DEXPHARM-2024-2903

PATIENT
  Age: 88 Year
  Sex: Female

DRUGS (2)
  1. LANSOPRAZOLE [Interacting]
     Active Substance: LANSOPRAZOLE
  2. CEFTRIAXONE [Interacting]
     Active Substance: CEFTRIAXONE\CEFTRIAXONE SODIUM
     Indication: Pyelonephritis
     Dosage: 1 G/DAY

REACTIONS (1)
  - Cardiac arrest [Fatal]
